FAERS Safety Report 4753397-7 (Version None)
Quarter: 2005Q3

REPORT INFORMATION
  Report Type: 
  Country: None (occurrence: None)
  Receive Date: 20050824
  Receipt Date: 20050808
  Transmission Date: 20060218
  Serious: Yes (Hospitalization)
  Sender: FDA-Public Use
  Company Number: USA0508104822

PATIENT
  Age: 49 Year
  Sex: Male

DRUGS (1)
  1. HUMULIN R [Suspect]

REACTIONS (1)
  - CARDIAC DISORDER [None]
